FAERS Safety Report 6734077-5 (Version None)
Quarter: 2010Q2

REPORT INFORMATION
  Report Type: 
  Country: None (occurrence: None)
  Receive Date: 20100520
  Receipt Date: 20100514
  Transmission Date: 20101027
  Serious: Yes (Other)
  Sender: FDA-Public Use
  Company Number: HQWYE398105JAN05

PATIENT
  Sex: Female

DRUGS (2)
  1. PREMARIN [Suspect]
     Indication: HORMONE REPLACEMENT THERAPY
     Dosage: NOT SPECIFIED
     Route: 048
     Dates: start: 19920101, end: 19970101
  2. PROVERA [Suspect]
     Indication: HORMONE REPLACEMENT THERAPY

REACTIONS (3)
  - BREAST CANCER METASTATIC [None]
  - FATIGUE [None]
  - HYPOTHYROIDISM [None]
